FAERS Safety Report 4292544-0 (Version None)
Quarter: 2004Q1

REPORT INFORMATION
  Report Type: 
  Country: None (occurrence: None)
  Receive Date: 20040211
  Receipt Date: 20040211
  Transmission Date: 20041129
  Serious: No
  Sender: FDA-Public Use
  Company Number: None

PATIENT
  Age: 69 Year
  Sex: Male
  Weight: 95.709 kg

DRUGS (5)
  1. ZETIA [Suspect]
     Indication: DYSLIPIDAEMIA
     Dosage: 10 MG QD ORAL
     Route: 048
     Dates: start: 20030528, end: 20031222
  2. ASPIRIN [Concomitant]
  3. PLAVIX [Concomitant]
  4. HYTRIN [Concomitant]
  5. ZOCOR [Concomitant]

REACTIONS (4)
  - DRY MOUTH [None]
  - ORAL DISCOMFORT [None]
  - SWOLLEN TONGUE [None]
  - TONGUE DISORDER [None]
